FAERS Safety Report 15612474 (Version 7)
Quarter: 2019Q3

REPORT INFORMATION
  Report Type: Spontaneous
  Country: JP (occurrence: JP)
  Receive Date: 20181113
  Receipt Date: 20190902
  Transmission Date: 20191004
  Serious: Yes (Death, Other)
  Sender: FDA-Public Use
  Company Number: JP-ACTELION-A-CH2018-181761

PATIENT
  Age: 46 Year
  Sex: Male
  Weight: 42 kg

DRUGS (28)
  1. OPSUMIT [Suspect]
     Active Substance: MACITENTAN
     Indication: PULMONARY ARTERIAL HYPERTENSION
     Dosage: 10 MG, QD
     Route: 048
     Dates: start: 20181010, end: 20181101
  2. UPTRAVI [Suspect]
     Active Substance: SELEXIPAG
     Indication: PULMONARY ARTERIAL HYPERTENSION
     Dosage: 0.8 MCG, BID
     Route: 048
     Dates: start: 20181025, end: 20181103
  3. VOLIBRIS [Concomitant]
     Active Substance: AMBRISENTAN
     Indication: PULMONARY ARTERIAL HYPERTENSION
     Dosage: 5 MG, QD
     Dates: end: 20181010
  4. BIOFERMIN R [Concomitant]
     Active Substance: DIETARY SUPPLEMENT\PROBIOTICS
     Indication: DIARRHOEA
     Dosage: 18 MG, QD
     Dates: end: 20181101
  5. BISONO [Concomitant]
     Active Substance: BISOPROLOL
     Indication: HYPERTENSION
     Dosage: 4 MG, QD
     Dates: end: 20181101
  6. UPTRAVI [Suspect]
     Active Substance: SELEXIPAG
     Dosage: 0.4 MCG, BID
     Route: 048
     Dates: start: 20181003, end: 20181017
  7. FUROSEMIDE. [Concomitant]
     Active Substance: FUROSEMIDE
     Dosage: 10 MG, QD
     Dates: end: 20181101
  8. REBAMIPIDE [Concomitant]
     Active Substance: REBAMIPIDE
     Indication: GASTRIC ULCER
     Dosage: 100 MG, QD
     Dates: end: 20181101
  9. PROSTANDIN [Concomitant]
     Indication: SKIN ULCER
     Dosage: UNK
     Dates: end: 20181101
  10. BISONO [Concomitant]
     Active Substance: BISOPROLOL
     Indication: SUPRAVENTRICULAR TACHYCARDIA
  11. MUCODYNE [Concomitant]
     Active Substance: CARBOCYSTEINE
     Indication: BRONCHITIS CHRONIC
     Dosage: 1500 MG, QD
     Dates: end: 20181101
  12. MIYA-BM [Concomitant]
     Active Substance: CLOSTRIDIUM BUTYRICUM SPORES STRAIN M-55
     Indication: CHRONIC GASTRITIS
     Dosage: 60 MG, QD
     Dates: end: 20181101
  13. HIRUDOID [Concomitant]
     Active Substance: GLYCOSAMINOGLYCANS
     Indication: ANGIOPATHY
     Dosage: UNK
     Dates: end: 20181101
  14. GEBEN [Concomitant]
     Active Substance: SILVER SULFADIAZINE
     Indication: SKIN ULCER
     Dosage: UNK
     Dates: end: 20181101
  15. OXYGEN. [Concomitant]
     Active Substance: OXYGEN
  16. MEDICON [Concomitant]
     Active Substance: DEXTROMETHORPHAN HYDROBROMIDE
     Indication: BRONCHITIS CHRONIC
     Dosage: 90 MG, QD
     Dates: end: 20181101
  17. NEXIUM [Concomitant]
     Active Substance: ESOMEPRAZOLE MAGNESIUM
     Indication: GASTRIC ULCER
     Dosage: 20 MG, QD
     Dates: end: 20181101
  18. PREDONINE [Concomitant]
     Active Substance: PREDNISOLONE
     Dosage: 7.5 MG, QD
     Dates: end: 20181101
  19. BAKTAR [Concomitant]
     Active Substance: SULFAMETHOXAZOLE\TRIMETHOPRIM
     Dosage: 1 G, QD
     Dates: end: 20181101
  20. LOXOPROFEN NA [Concomitant]
     Active Substance: LOXOPROFEN SODIUM
     Indication: HEADACHE
     Dosage: 60 MG, QD
     Dates: end: 20181010
  21. DEQUALINIUM CHLORIDE [Concomitant]
     Active Substance: DEQUALINIUM CHLORIDE
     Indication: STOMATITIS
     Dosage: 0.75 MG, QD
     Dates: end: 20181101
  22. ROZEREM [Concomitant]
     Active Substance: RAMELTEON
     Indication: INSOMNIA
     Dosage: 8 MG, QD
     Dates: end: 20181101
  23. MUCOSOLVAN [Concomitant]
     Active Substance: AMBROXOL HYDROCHLORIDE
     Indication: BRONCHITIS CHRONIC
     Dosage: 45 MG, QD
     Dates: end: 20181101
  24. TALION [Concomitant]
     Indication: URTICARIA
     Dosage: 20 MG, QD
     Dates: end: 20181101
  25. PARACETAMOL [Concomitant]
     Active Substance: ACETAMINOPHEN
     Indication: HEADACHE
     Dosage: UNK
     Dates: end: 20181101
  26. UPTRAVI [Suspect]
     Active Substance: SELEXIPAG
     Dosage: 0.2 MCG, BID
     Route: 048
     Dates: start: 20180926, end: 20181002
  27. UPTRAVI [Suspect]
     Active Substance: SELEXIPAG
     Dosage: 0.6 MCG, BID
     Route: 048
     Dates: start: 20181018, end: 20181024
  28. GASMOTIN [Concomitant]
     Active Substance: MOSAPRIDE CITRATE
     Indication: CHRONIC GASTRITIS
     Dosage: 15 MG, QD
     Dates: end: 20181101

REACTIONS (6)
  - Respiratory failure [Fatal]
  - Venous injury [Unknown]
  - Supraventricular tachycardia [Not Recovered/Not Resolved]
  - Condition aggravated [Fatal]
  - Pulmonary arterial hypertension [Fatal]
  - Pulmonary oedema [Fatal]

NARRATIVE: CASE EVENT DATE: 20181024
